FAERS Safety Report 6860994-1 (Version None)
Quarter: 2010Q3

REPORT INFORMATION
  Report Type: 
  Country: None (occurrence: None)
  Receive Date: 20100720
  Receipt Date: 20100713
  Transmission Date: 20110219
  Serious: Yes (Hospitalization)
  Sender: FDA-Public Use
  Company Number: US-JNJFOC-20100507742

PATIENT
  Age: 63 Year
  Sex: Female
  Weight: 99.79 kg

DRUGS (11)
  1. TYLENOL (CAPLET) [Suspect]
  2. TYLENOL (CAPLET) [Suspect]
     Indication: ARTHRALGIA
  3. ZOCOR [Concomitant]
     Indication: BLOOD CHOLESTEROL INCREASED
  4. DILANTIN [Concomitant]
     Indication: CONVULSION
     Dosage: 100 MG 2-3 TIMES DAILY
  5. NEXIUM [Concomitant]
     Indication: GASTROOESOPHAGEAL REFLUX DISEASE
  6. UNKNOWN MEDICATION [Concomitant]
     Indication: MULTIPLE ALLERGIES
  7. PLAVIX [Concomitant]
     Indication: ARTERIOSCLEROSIS
  8. FLEXERIL [Concomitant]
     Indication: MUSCLE RELAXANT THERAPY
  9. ASPIRIN [Concomitant]
     Indication: CARDIAC DISORDER
  10. NEURONTIN [Concomitant]
     Indication: NEUROPATHY PERIPHERAL
  11. UNKNOWN MEDICATION [Concomitant]
     Indication: PAIN
     Route: 061

REACTIONS (5)
  - EPISTAXIS [None]
  - MOUTH HAEMORRHAGE [None]
  - POISONING [None]
  - SKIN DISCOLOURATION [None]
  - SKIN ULCER [None]
